FAERS Safety Report 12894039 (Version 1)
Quarter: 2016Q4

REPORT INFORMATION
  Report Type: Spontaneous
  Country: US (occurrence: US)
  Receive Date: 20161028
  Receipt Date: 20161028
  Transmission Date: 20170207
  Serious: No
  Sender: FDA-Public Use
  Company Number: US-PFIZER INC-2016497626

PATIENT
  Age: 71 Year
  Sex: Male

DRUGS (1)
  1. BACITRACIN. [Suspect]
     Active Substance: BACITRACIN
     Indication: WOUND INFECTION
     Dosage: UNK
     Dates: start: 20160810, end: 20160825

REACTIONS (1)
  - Drug ineffective [Unknown]
